FAERS Safety Report 6379367-3 (Version None)
Quarter: 2009Q3

REPORT INFORMATION
  Report Type: 
  Country: None (occurrence: None)
  Receive Date: 20090923
  Receipt Date: 20090923
  Transmission Date: 20100115
  Serious: No
  Sender: FDA-Public Use
  Company Number: None

PATIENT
  Age: 70 Year
  Sex: Male
  Weight: 91.6 kg

DRUGS (11)
  1. DILANTIN [Suspect]
     Indication: CONVULSION
     Dosage: 350 IV QRN
     Dates: start: 20081105, end: 20081115
  2. WARFARIN SODIUM [Concomitant]
  3. AMPICILLIN AND SULBACTAM [Concomitant]
  4. BACITRACIN [Concomitant]
  5. FLUCONAZOLE [Concomitant]
  6. LANSOPRAZOLE [Concomitant]
  7. PHENOBARBITAL TAB [Concomitant]
  8. VANCOMYCIN (ORAL SUSP) [Concomitant]
  9. ARGATROBAN [Concomitant]
  10. KCI [Concomitant]
  11. TPN [Concomitant]

REACTIONS (2)
  - BLOOD ALBUMIN DECREASED [None]
  - UNRESPONSIVE TO STIMULI [None]
